FAERS Safety Report 23667013 (Version 2)
Quarter: 2024Q2

REPORT INFORMATION
  Report Type: Spontaneous
  Country: KR (occurrence: KR)
  Receive Date: 20240325
  Receipt Date: 20240401
  Transmission Date: 20240716
  Serious: Yes (Hospitalization, Other)
  Sender: FDA-Public Use
  Company Number: KR-NOVOPROD-1190919

PATIENT
  Age: 75 Year
  Sex: Female
  Weight: 48.3 kg

DRUGS (6)
  1. TRESIBA [Suspect]
     Active Substance: INSULIN DEGLUDEC
     Indication: Diabetes mellitus
     Dosage: UNK
     Dates: start: 20211117
  2. MELATONIN [Suspect]
     Active Substance: MELATONIN
     Indication: Insomnia
     Dosage: 2 MG, QD (CUMULATIVE DOSE TO FIRST REACTION 128 MILLIGRAM)
     Dates: start: 20211216, end: 20220219
  3. TRAZODONE HYDROCHLORIDE [Suspect]
     Active Substance: TRAZODONE HYDROCHLORIDE
     Indication: Insomnia
     Dosage: UNK
     Dates: start: 20220124
  4. CLONAZEPAM [Suspect]
     Active Substance: CLONAZEPAM
     Indication: Insomnia
     Dosage: 0.5 MG, QD (CUMULATIVE DOSE TO FIRST REACTION 12.5 MILLIGRAM. DURATION OF DRUG ADMINISTRATION IS 27
     Dates: start: 20220124, end: 20220219
  5. ZOLPIDEM TARTRATE [Suspect]
     Active Substance: ZOLPIDEM TARTRATE
     Indication: Insomnia
     Dosage: 5 MG, QD (CUMULATIVE DOSE TO FIRST REACTION IS 55 MILLIGRAM. DURATION OF DRUG ADMINISTRATION IS 66 D
     Dates: start: 20211216, end: 20220219
  6. ATORVASTATIN CALCIUM TRIHYDRATE\EZETIMIBE [Suspect]
     Active Substance: ATORVASTATIN CALCIUM TRIHYDRATE\EZETIMIBE
     Indication: Hypertension
     Dosage: 1 DF, QD (CUMULATIVE DOSE TO FIRST REACTION IS 93 DOSAGE FORMS. DURATION OF DRUG ADMINISTRATION IS 9
     Dates: start: 20211117, end: 20220219

REACTIONS (2)
  - Hepatitis acute [Recovered/Resolved]
  - Insomnia [Not Recovered/Not Resolved]

NARRATIVE: CASE EVENT DATE: 20211119
